FAERS Safety Report 4319642-7 (Version None)
Quarter: 2004Q1

REPORT INFORMATION
  Report Type: 
  Country: None (occurrence: None)
  Receive Date: 20040316
  Receipt Date: 20040308
  Transmission Date: 20041129
  Serious: Yes (Death)
  Sender: FDA-Public Use
  Company Number: DSA_60356_2003

PATIENT
  Age: 6 Year
  Sex: Male
  Weight: 33.5662 kg

DRUGS (5)
  1. DIASTAT [Suspect]
     Indication: CONVULSION
     Dosage: 10 MG PRN SC
     Route: 058
     Dates: start: 20031029, end: 20031029
  2. LAMICTAL [Concomitant]
  3. DEPAKOTE [Concomitant]
  4. CARNITOR [Concomitant]
  5. ZONEGRAN [Concomitant]

REACTIONS (1)
  - DEATH [None]
